FAERS Safety Report 4751706-6 (Version None)
Quarter: 2005Q3

REPORT INFORMATION
  Report Type: 
  Country: None (occurrence: None)
  Receive Date: 20050822
  Receipt Date: 20050805
  Transmission Date: 20060218
  Serious: Yes (Hospitalization)
  Sender: FDA-Public Use
  Company Number: DSA_26874_2005

PATIENT
  Age: 63 Year
  Sex: Female

DRUGS (3)
  1. LORAZEPAM [Suspect]
     Dosage: 7.5 MG Q DAY PO
     Route: 048
  2. FLUOXETINE [Suspect]
     Dosage: 20 MG Q DAY PO
     Route: 048
  3. MEPRONIZINE [Suspect]
     Dosage: 1 MG Q DAY PO
     Route: 048

REACTIONS (6)
  - BRADYCARDIA [None]
  - ELECTROCARDIOGRAM QT PROLONGED [None]
  - FALL [None]
  - HEAD INJURY [None]
  - SYNCOPE [None]
  - TORSADE DE POINTES [None]
